FAERS Safety Report 7921417-4 (Version None)
Quarter: 2011Q4

REPORT INFORMATION
  Report Type: 
  Country: None (occurrence: None)
  Receive Date: 20111117
  Receipt Date: 20110814
  Transmission Date: 20120403
  Serious: No
  Sender: FDA-Public Use
  Company Number: US-BAYER-2011-076382

PATIENT

DRUGS (2)
  1. BC [Concomitant]
     Dosage: 1 DF, ONCE
     Dates: start: 20110812
  2. ALEVE (CAPLET) [Suspect]
     Dosage: 4 DF, ONCE
     Dates: start: 20110812

REACTIONS (1)
  - NO ADVERSE EVENT [None]
